FAERS Safety Report 5138729-2 (Version None)
Quarter: 2006Q4

REPORT INFORMATION
  Report Type: 
  Country: None (occurrence: None)
  Receive Date: 20061030
  Receipt Date: 20060921
  Transmission Date: 20070319
  Serious: Yes (Disabling)
  Sender: FDA-Public Use
  Company Number: DE-MERCK-0609DEU00077

PATIENT
  Age: 72 Year
  Sex: Male
  Weight: 83 kg

DRUGS (8)
  1. VYTORIN [Suspect]
     Indication: CORONARY ARTERY DISEASE
     Route: 048
     Dates: start: 20050419
  2. VYTORIN [Suspect]
     Indication: HYPERLIPIDAEMIA
     Route: 048
     Dates: start: 20050419
  3. ASPIRIN [Concomitant]
     Route: 048
  4. NEBIVOLOL HYDROCHLORIDE [Concomitant]
     Route: 048
  5. ISOSORBIDE MONONITRATE [Concomitant]
     Route: 048
  6. MOLSIDOMINE [Concomitant]
     Route: 048
  7. INSULIN GLARGINE [Concomitant]
     Route: 065
  8. INSULIN LISPRO [Concomitant]
     Route: 065

REACTIONS (1)
  - TENDON RUPTURE [None]
